FAERS Safety Report 12048640 (Version 1)
Quarter: 2016Q1

REPORT INFORMATION
  Report Type: Spontaneous
  Country: US (occurrence: None)
  Receive Date: 20160208
  Receipt Date: 20160208
  Transmission Date: 20160526
  Serious: No
  Sender: FDA-Public Use
  Company Number: None

PATIENT
  Age: 37 Year
  Sex: Male
  Weight: 99.79 kg

DRUGS (7)
  1. DULERA INHALER [Concomitant]
  2. HORIZANT [Suspect]
     Active Substance: GABAPENTIN ENACARBIL
     Indication: RESTLESS LEGS SYNDROME
     Dosage: 1-2 TABLETS A NIGHT ONCE DAILY TAKEN BY MOUTH
     Route: 048
     Dates: start: 20160201, end: 20160203
  3. FISHER AND PAYKAL CPAP [Concomitant]
  4. MIRAPEX ER [Concomitant]
     Active Substance: PRAMIPEXOLE DIHYDROCHLORIDE
  5. LANSOAZOPROLE [Concomitant]
  6. MEN^S ONE A DAY [Concomitant]
  7. FLUOXETINE [Concomitant]
     Active Substance: FLUOXETINE HYDROCHLORIDE

REACTIONS (5)
  - Drug ineffective [None]
  - Insomnia [None]
  - Fatigue [None]
  - Condition aggravated [None]
  - Restless legs syndrome [None]

NARRATIVE: CASE EVENT DATE: 20160202
